FAERS Safety Report 4880943-5 (Version None)
Quarter: 2005Q4

REPORT INFORMATION
  Report Type: 
  Country: None (occurrence: None)
  Receive Date: 20051223
  Receipt Date: 20050929
  Transmission Date: 20060501
  Serious: No
  Sender: FDA-Public Use
  Company Number: 05P-163-0312379-00

PATIENT
  Sex: Female

DRUGS (3)
  1. HUMIRA [Suspect]
     Dosage: 40 MG, SUBCUTANEOUS
     Route: 058
     Dates: start: 20041201
  2. HYDROCHLOROTHIAZIDE [Concomitant]
  3. UNSPECIFIED STEROID [Concomitant]

REACTIONS (4)
  - CHROMATURIA [None]
  - FEELING COLD [None]
  - MUSCLE SPASMS [None]
  - MUSCULAR WEAKNESS [None]
